FAERS Safety Report 19477320 (Version 1)
Quarter: 2021Q2

REPORT INFORMATION
  Report Type: Report from Study
  Country: US (occurrence: US)
  Receive Date: 20210630
  Receipt Date: 20210630
  Transmission Date: 20210717
  Serious: Yes (Other)
  Sender: FDA-Public Use
  Company Number: US-MYLANLABS-2021M1038470

PATIENT
  Age: 73 Year
  Sex: Female

DRUGS (5)
  1. BIVALIRUDIN. [Suspect]
     Active Substance: BIVALIRUDIN
     Indication: ANTICOAGULANT THERAPY
  2. HEPARIN [Suspect]
     Active Substance: HEPARIN SODIUM
     Indication: ANTICOAGULANT THERAPY
  3. HEPARIN [Suspect]
     Active Substance: HEPARIN SODIUM
     Indication: PROPHYLAXIS
     Dosage: 25?50 UNITS/ML
     Route: 065
  4. BIVALIRUDIN. [Suspect]
     Active Substance: BIVALIRUDIN
     Indication: PROPHYLAXIS
     Dosage: 20 MILLIGRAM (PER 500ML CONCENTRATION FOR PURGE SOLUTION)
     Route: 065
  5. DEXTROSE. [Concomitant]
     Active Substance: DEXTROSE
     Indication: VEHICLE SOLUTION USE
     Dosage: UNK
     Route: 065

REACTIONS (2)
  - Off label use [Unknown]
  - Heparin-induced thrombocytopenia [Unknown]
